FAERS Safety Report 24738799 (Version 1)
Quarter: 2024Q4

REPORT INFORMATION
  Report Type: Report from Study
  Country: RO (occurrence: RO)
  Receive Date: 20241216
  Receipt Date: 20241216
  Transmission Date: 20250115
  Serious: Yes (Death, Other)
  Sender: BIOVITRUM
  Company Number: RO-AstraZeneca-CH-00764875A

PATIENT
  Sex: Male

DRUGS (2)
  1. PALIVIZUMAB [Suspect]
     Active Substance: PALIVIZUMAB
     Indication: Premature baby
     Dosage: MONTHLY
     Route: 030
     Dates: start: 20241025, end: 20241025
  2. PALIVIZUMAB [Suspect]
     Active Substance: PALIVIZUMAB
     Dosage: EVERY MONTH
     Route: 030
     Dates: start: 20241025, end: 20241025

REACTIONS (5)
  - Pneumonia [Fatal]
  - Cyanosis [Fatal]
  - Loss of consciousness [Fatal]
  - Purpura [Fatal]
  - Rash macular [Fatal]

NARRATIVE: CASE EVENT DATE: 20241101
